FAERS Safety Report 7990526-6 (Version None)
Quarter: 2011Q4

REPORT INFORMATION
  Report Type: 
  Country: None (occurrence: None)
  Receive Date: 20111219
  Receipt Date: 20110221
  Transmission Date: 20120403
  Serious: No
  Sender: FDA-Public Use
  Company Number: US-ASTRAZENECA-2010SE07707

PATIENT
  Age: 78 Year
  Sex: Female
  Weight: 49 kg

DRUGS (13)
  1. JANTOVEN [Concomitant]
     Indication: ANTICOAGULANT THERAPY
     Dosage: 2 MG VARIES DAILY
  2. CRESTOR [Suspect]
     Indication: BLOOD CHOLESTEROL
     Route: 048
     Dates: start: 20070101
  3. MULTAQ [Concomitant]
  4. MULTAQ [Concomitant]
     Indication: ATRIAL FIBRILLATION
  5. MULTAQ [Concomitant]
  6. EVISTA [Concomitant]
  7. JANTOVEN [Concomitant]
     Dosage: MAY BE UPTO 5 MGS ADJUSTABLE
  8. ISOSORBIDE MONONITRATE [Concomitant]
  9. ATENOLOL [Concomitant]
     Indication: BLOOD PRESSURE
  10. MULTAQ [Concomitant]
     Indication: ARRHYTHMIA
  11. LEVOXYL [Concomitant]
     Indication: THYROID DISORDER
  12. JANTOVEN [Concomitant]
  13. ADVICOR [Concomitant]
     Indication: BLOOD CHOLESTEROL
     Dosage: 1000/20 DAILY

REACTIONS (4)
  - PLATELET COUNT DECREASED [None]
  - NECK PAIN [None]
  - MUSCULOSKELETAL PAIN [None]
  - MYALGIA [None]
